FAERS Safety Report 6303168-5 (Version None)
Quarter: 2009Q3

REPORT INFORMATION
  Report Type: 
  Country: None (occurrence: None)
  Receive Date: 20090810
  Receipt Date: 20090323
  Transmission Date: 20100115
  Serious: No
  Sender: FDA-Public Use
  Company Number: A0774826A

PATIENT
  Age: 81 Year
  Sex: Male

DRUGS (3)
  1. PAXIL CR [Suspect]
     Route: 048
     Dates: start: 20070901
  2. BLOOD PRESSURE MEDICATION [Concomitant]
  3. LIPITOR [Concomitant]

REACTIONS (2)
  - FATIGUE [None]
  - SOMNOLENCE [None]
